FAERS Safety Report 17567990 (Version 2)
Quarter: 2020Q2

REPORT INFORMATION
  Report Type: Spontaneous
  Country: IT (occurrence: IT)
  Receive Date: 20200321
  Receipt Date: 20200624
  Transmission Date: 20200713
  Serious: Yes (Life-Threatening)
  Sender: FDA-Public Use
  Company Number: IT-TEVA-2020-IT-1205481

PATIENT
  Age: 76 Year
  Sex: Female
  Weight: 64 kg

DRUGS (2)
  1. PACLITAXEL. [Suspect]
     Active Substance: PACLITAXEL
     Indication: RECURRENT CANCER
     Dosage: 80 MG/M2
     Route: 042
     Dates: start: 20200110, end: 20200110
  2. CARBOPLATIN. [Concomitant]
     Active Substance: CARBOPLATIN
     Indication: RECURRENT CANCER
     Dates: start: 20200110, end: 20200117

REACTIONS (3)
  - Hot flush [Recovered/Resolved]
  - Dyspnoea [Recovered/Resolved]
  - Erythema [Recovered/Resolved]
